FAERS Safety Report 8084697-3 (Version None)
Quarter: 2012Q1

REPORT INFORMATION
  Report Type: 
  Country: None (occurrence: None)
  Receive Date: 20120130
  Receipt Date: 20070207
  Transmission Date: 20120608
  Serious: Yes (Hospitalization)
  Sender: FDA-Public Use
  Company Number: JP-SANTEN INC.-INC-11-000226

PATIENT
  Age: 78 Year
  Sex: Male

DRUGS (1)
  1. LEVOFLOXACIN [Suspect]
     Indication: CONJUNCTIVAL HYPERAEMIA
     Route: 047
     Dates: start: 20030701

REACTIONS (3)
  - CONJUNCTIVAL HYPERAEMIA [None]
  - EYE INFECTION INTRAOCULAR [None]
  - EYE ABSCESS [None]
